FAERS Safety Report 23957684 (Version 1)
Quarter: 2024Q2

REPORT INFORMATION
  Report Type: Spontaneous
  Country: US (occurrence: None)
  Receive Date: 20240608
  Receipt Date: 20240608
  Transmission Date: 20240716
  Serious: No
  Sender: FDA-Public Use
  Company Number: None

PATIENT
  Age: 60 Year
  Sex: Female
  Weight: 61.65 kg

DRUGS (5)
  1. PEPPERMINT [Suspect]
     Active Substance: PEPPERMINT
     Indication: Periodontitis
     Dosage: OTHER QUANTITY : 16 OUNCE(S)?FREQUENCY : 3 TIMES A DAY?
     Route: 048
     Dates: start: 20240606, end: 20240608
  2. VEGAN MULTIVITAMIN [Concomitant]
  3. VITAMIN D3 [Concomitant]
     Active Substance: CHOLECALCIFEROL
  4. CALCIUM [Concomitant]
     Active Substance: CALCIUM
  5. OMEGA [Concomitant]

REACTIONS (3)
  - Rash [None]
  - Rash [None]
  - Rash [None]

NARRATIVE: CASE EVENT DATE: 20240606
